FAERS Safety Report 16167703 (Version 1)
Quarter: 2019Q2

REPORT INFORMATION
  Report Type: Report from Study
  Country: JP (occurrence: JP)
  Receive Date: 20190408
  Receipt Date: 20190408
  Transmission Date: 20190711
  Serious: Yes (Hospitalization)
  Sender: FDA-Public Use
  Company Number: JP-ASTRAZENECA-2019SE53262

PATIENT
  Age: 69 Year
  Sex: Male

DRUGS (2)
  1. SAXAGLIPTIN [Suspect]
     Active Substance: SAXAGLIPTIN
     Indication: TYPE 2 DIABETES MELLITUS
     Route: 048
     Dates: start: 20141220
  2. BASEN [Concomitant]
     Active Substance: VOGLIBOSE
     Dates: end: 20170819

REACTIONS (4)
  - Endocarditis [Recovered/Resolved]
  - Thrombocytopenia [Recovering/Resolving]
  - Gastroenteritis [Recovered/Resolved]
  - Aortic valve disease [Recovered/Resolved]

NARRATIVE: CASE EVENT DATE: 20170516
